FAERS Safety Report 15418429 (Version 2)
Quarter: 2018Q4

REPORT INFORMATION
  Report Type: Spontaneous
  Country: US (occurrence: US)
  Receive Date: 20180924
  Receipt Date: 20181009
  Transmission Date: 20190204
  Serious: No
  Sender: FDA-Public Use
  Company Number: US-MYLANLABS-2018M1066829

PATIENT
  Age: 53 Year
  Sex: Female
  Weight: 57 kg

DRUGS (1)
  1. FENTANYL TRANSDERMAL SYSTEM [Suspect]
     Active Substance: FENTANYL
     Indication: BREAST CANCER
     Dosage: UNK
     Route: 062

REACTIONS (3)
  - Wrong technique in product usage process [Unknown]
  - Vomiting [Unknown]
  - Product adhesion issue [Unknown]
